FAERS Safety Report 15557961 (Version 2)
Quarter: 2019Q1

REPORT INFORMATION
  Report Type: Spontaneous
  Country: US (occurrence: US)
  Receive Date: 20181027
  Receipt Date: 20190129
  Transmission Date: 20190417
  Serious: Yes (Other)
  Sender: FDA-Public Use
  Company Number: US-009507513-1810USA010995

PATIENT
  Age: 38 Year
  Sex: Female

DRUGS (4)
  1. CARBOPLATIN. [Concomitant]
     Active Substance: CARBOPLATIN
     Indication: MYCOSIS FUNGOIDES STAGE IV
     Dosage: AUC OF 5 ON DAY 3
  2. ETOPOSIDE. [Concomitant]
     Active Substance: ETOPOSIDE
     Indication: MYCOSIS FUNGOIDES STAGE IV
     Dosage: 100 MG/M2 ON DAYS 1 TO 3
  3. EMEND [Suspect]
     Active Substance: APREPITANT
     Indication: PROPHYLAXIS OF NAUSEA AND VOMITING
     Dosage: UNK
     Route: 048
  4. IFOSFAMIDE. [Suspect]
     Active Substance: IFOSFAMIDE
     Indication: MYCOSIS FUNGOIDES STAGE IV
     Dosage: 5000 MG/M2 ON DAY 2 INFUSED OVER 24 HOURS

REACTIONS (1)
  - Metabolic encephalopathy [Recovered/Resolved]
